FAERS Safety Report 6089429-6 (Version None)
Quarter: 2009Q1

REPORT INFORMATION
  Report Type: 
  Country: None (occurrence: None)
  Receive Date: 20090224
  Receipt Date: 20090217
  Transmission Date: 20090719
  Serious: Yes (Other)
  Sender: FDA-Public Use
  Company Number: EG-ELI_LILLY_AND_COMPANY-EG200811004683

PATIENT
  Age: 26 Year
  Sex: Female
  Weight: 85 kg

DRUGS (7)
  1. INSULIN, HUMAN [Suspect]
     Indication: GESTATIONAL DIABETES
     Dosage: 35 IU, EACH MORNING
     Route: 065
     Dates: end: 20081001
  2. INSULIN, HUMAN [Suspect]
     Dosage: 25 IU, EACH EVENING
     Dates: end: 20081001
  3. LISPRO [Suspect]
     Indication: GESTATIONAL DIABETES
     Dosage: 35 IU, EACH MORNING
     Route: 058
     Dates: start: 20081111
  4. LISPRO [Suspect]
     Dosage: 25 IU, EACH EVENING
     Route: 058
     Dates: start: 20081111
  5. LISPRO [Suspect]
     Dosage: 20 IU, EACH EVENING
     Route: 058
  6. LISPRO [Suspect]
     Dosage: 10 IU, EACH EVENING
     Route: 058
  7. VITAMINS WITH MINERALS [Concomitant]
     Dosage: UNK, DAILY (1/D)
     Route: 065

REACTIONS (4)
  - BLOOD ALBUMIN INCREASED [None]
  - DRUG EXPOSURE DURING PREGNANCY [None]
  - HYPERGLYCAEMIA [None]
  - HYPERTENSION [None]
